FAERS Safety Report 24553724 (Version 1)
Quarter: 2024Q4

REPORT INFORMATION
  Report Type: Spontaneous
  Country: US (occurrence: US)
  Receive Date: 20241028
  Receipt Date: 20241028
  Transmission Date: 20250115
  Serious: No
  Sender: ROCHE
  Company Number: US-ROCHE-3571484

PATIENT
  Age: 13 Year
  Sex: Male
  Weight: 46.72 kg

DRUGS (2)
  1. NUTROPIN AQ [Suspect]
     Active Substance: SOMATROPIN
     Indication: Hypopituitarism
     Dosage: QD
     Route: 058
     Dates: start: 20230708
  2. NORDITROPIN [Concomitant]
     Active Substance: SOMATROPIN
     Dates: start: 20221213

REACTIONS (3)
  - Product dose omission issue [Unknown]
  - No adverse event [Unknown]
  - Off label use [Unknown]
